FAERS Safety Report 5633251-9 (Version None)
Quarter: 2008Q1

REPORT INFORMATION
  Report Type: 
  Country: None (occurrence: None)
  Receive Date: 20080221
  Receipt Date: 20080215
  Transmission Date: 20080703
  Serious: Yes (Hospitalization)
  Sender: FDA-Public Use
  Company Number: US-BAXTER-2008BH000565

PATIENT
  Age: 60 Year
  Sex: Female

DRUGS (5)
  1. HEPARIN SODIUM [Suspect]
     Indication: THROMBOSIS PROPHYLAXIS
     Route: 042
     Dates: start: 20071106
  2. HEPARIN SODIUM [Suspect]
     Route: 042
     Dates: start: 20071106
  3. HEPARIN SODIUM [Suspect]
     Route: 042
     Dates: start: 20071123
  4. HEPARIN SODIUM [Suspect]
     Route: 042
     Dates: start: 20071123
  5. PROCRIT [Concomitant]
     Indication: DRUG USE FOR UNKNOWN INDICATION
     Dosage: DOSE UNIT:UNKNOWN
     Route: 065

REACTIONS (4)
  - CHILLS [None]
  - KLEBSIELLA INFECTION [None]
  - PYREXIA [None]
  - TREMOR [None]
